FAERS Safety Report 15324375 (Version 3)
Quarter: 2019Q2

REPORT INFORMATION
  Report Type: Spontaneous
  Country: BR (occurrence: BR)
  Receive Date: 20180828
  Receipt Date: 20190605
  Transmission Date: 20190711
  Serious: Yes (Other)
  Sender: FDA-Public Use
  Company Number: BR-ABBVIE-18P-020-2465837-00

PATIENT
  Sex: Female
  Weight: 90 kg

DRUGS (6)
  1. TEGRETOL XR [Concomitant]
     Active Substance: CARBAMAZEPINE
     Indication: SEIZURE
     Dosage: DAILY DOSE: AT 6 A.M.,11 A.M., 2 P.M., 6 P.M. , 10 P.M.
     Route: 048
  2. DEPAKENE [Suspect]
     Active Substance: VALPROIC ACID
     Indication: PRODUCT USED FOR UNKNOWN INDICATION
     Route: 065
  3. DEPAKENE [Suspect]
     Active Substance: VALPROIC ACID
     Indication: EPILEPSY
     Dosage: DAILY DOSE: UNSPECIFIED DOSE AT 6 A.M AND AT 6 P.M.
     Route: 048
     Dates: start: 201706
  4. GARDENAL [Concomitant]
     Active Substance: PHENOBARBITAL
     Indication: SEIZURE
     Dosage: DAILY DOSE: 1 UNSPECIFIED DOSE UNIT AT NIGHT.
     Route: 048
  5. FRISIUM [Concomitant]
     Active Substance: CLOBAZAM
     Indication: SLEEP DISORDER
  6. FRISIUM [Concomitant]
     Active Substance: CLOBAZAM
     Indication: FEELING OF RELAXATION
     Dosage: DAILY DOSE: AT NIGHT.
     Route: 048
     Dates: start: 2012

REACTIONS (10)
  - Seizure [Unknown]
  - Product quality issue [Unknown]
  - Road traffic accident [Unknown]
  - Drug ineffective [Unknown]
  - Headache [Unknown]
  - Headache [Recovered/Resolved]
  - Head discomfort [Recovered/Resolved]
  - Abdominal pain upper [Unknown]
  - Limb injury [Unknown]
  - Weight increased [Unknown]
